FAERS Safety Report 6541023-6 (Version None)
Quarter: 2010Q1

REPORT INFORMATION
  Report Type: 
  Country: None (occurrence: None)
  Receive Date: 20100118
  Receipt Date: 20100114
  Transmission Date: 20100710
  Serious: Yes (Death)
  Sender: FDA-Public Use
  Company Number: PT-BRISTOL-MYERS SQUIBB COMPANY-14928113

PATIENT
  Age: 60 Year
  Sex: Female

DRUGS (1)
  1. SPRYCEL [Suspect]
     Indication: CHRONIC MYELOID LEUKAEMIA
     Dosage: 50 MG /DAY SINCE 6 MONTHS AGO AFTER 2 MONTHS TAKING A DOSE OF 100 MG.
     Route: 048
     Dates: start: 20090101, end: 20100108

REACTIONS (1)
  - DEATH [None]
